FAERS Safety Report 4417287-1 (Version None)
Quarter: 2004Q3

REPORT INFORMATION
  Report Type: 
  Country: None (occurrence: None)
  Receive Date: 20040802
  Receipt Date: 20040719
  Transmission Date: 20050211
  Serious: Yes (Other)
  Sender: FDA-Public Use
  Company Number: 2003119654

PATIENT
  Age: 72 Year
  Sex: Female

DRUGS (18)
  1. LIPITOR [Suspect]
     Indication: BLOOD CHOLESTEROL
     Dosage: 10 MG, ORAL
     Route: 048
     Dates: start: 20030901, end: 20040327
  2. ZOLOFT [Suspect]
     Indication: FIBROMYALGIA
     Dosage: 50 MG, ORAL
     Route: 048
     Dates: start: 20030901
  3. CELECOXIB (CELECOXIB) [Suspect]
     Indication: FIBROMYALGIA
  4. ACETAMINOPHEN [Concomitant]
  5. ATENOLOL [Concomitant]
  6. DILTIAZEM HYDROCHLORIDE [Concomitant]
  7. DYAZIDE (HYDROCHLOROTHIAZIDE) [Concomitant]
  8. CLONAZEPAM [Concomitant]
  9. VITAMINS (VITAMINS) [Concomitant]
  10. CALCIUM (CALCIUM) [Concomitant]
  11. TOCOPHEROL CONCENTRATE CAP [Concomitant]
  12. FLUTICASONE PROPIONATE [Concomitant]
  13. LORATADINE [Concomitant]
  14. IBUPROFEN [Concomitant]
  15. ACETYLSALICYLIC ACID SRT [Concomitant]
  16. ALL OTHER THERAPEUTIC PRODUCTS (ALL OTHER THERAPEUTIC PRODUCTS) [Concomitant]
  17. ZINC (ZINC) [Concomitant]
  18. OTHER ANTIHYPERTENSIIVES (OTHER ANTIHYPERTENSIVES) [Concomitant]

REACTIONS (12)
  - ASTHENIA [None]
  - ATRIAL FIBRILLATION [None]
  - BLOOD CHOLESTEROL INCREASED [None]
  - DRUG EFFECT DECREASED [None]
  - DRUG INTOLERANCE [None]
  - FEELING ABNORMAL [None]
  - MEDICATION ERROR [None]
  - MEMORY IMPAIRMENT [None]
  - SLEEP DISORDER [None]
  - SPEECH DISORDER [None]
  - THERAPY NON-RESPONDER [None]
  - THERMAL BURN [None]
